FAERS Safety Report 11921124 (Version 1)
Quarter: 2016Q1

REPORT INFORMATION
  Report Type: Spontaneous
  Country: US (occurrence: US)
  Receive Date: 20160115
  Receipt Date: 20160115
  Transmission Date: 20160526
  Serious: No
  Sender: FDA-Public Use
  Company Number: US-ASTELLAS-2015US040806

PATIENT
  Sex: Female

DRUGS (1)
  1. MYRBETRIQ [Suspect]
     Active Substance: MIRABEGRON
     Indication: INCONTINENCE
     Dosage: 25 MG, ONCE DAILY FOR 04 TO 05 MONTHS
     Route: 065

REACTIONS (4)
  - Mood altered [Unknown]
  - Mental disorder [Unknown]
  - Crying [Unknown]
  - Off label use [Unknown]
